FAERS Safety Report 11310296 (Version 6)
Quarter: 2015Q4

REPORT INFORMATION
  Report Type: Report from Study
  Country: US (occurrence: US)
  Receive Date: 20150724
  Receipt Date: 20151230
  Transmission Date: 20160304
  Serious: Yes (Hospitalization, Other)
  Sender: FDA-Public Use
  Company Number: US-MALLINCKRODT-T201503469

PATIENT
  Age: 68 Year
  Sex: Female

DRUGS (1)
  1. REPOSITORY CORTICOTROPIN INJECTION [Suspect]
     Active Substance: CORTICOTROPIN
     Indication: NEPHROTIC SYNDROME
     Dosage: 80 UNITS, TWICE PER WEEK
     Route: 058
     Dates: start: 20140917

REACTIONS (9)
  - Asthenia [Not Recovered/Not Resolved]
  - Hip fracture [Unknown]
  - Weight decreased [Recovering/Resolving]
  - Pulmonary oedema [Recovering/Resolving]
  - Fatigue [None]
  - Fall [Unknown]
  - Mobility decreased [Recovered/Resolved]
  - Oedema [Recovering/Resolving]
  - Oxygen saturation decreased [None]

NARRATIVE: CASE EVENT DATE: 20151106
